FAERS Safety Report 7745862-5 (Version None)
Quarter: 2011Q3

REPORT INFORMATION
  Report Type: 
  Country: None (occurrence: None)
  Receive Date: 20110831
  Receipt Date: 20110816
  Transmission Date: 20111222
  Serious: Yes (Other)
  Sender: FDA-Public Use
  Company Number: B0742584A

PATIENT
  Sex: 0

DRUGS (2)
  1. FLUDARABINE PHOSPHATE [Suspect]
     Dosage: INTRAVENOUS
     Route: 042
  2. MELPHALAN INJECTION (GENERIC) (MELPHALAN) [Suspect]
     Indication: BONE MARROW TRANSPLANT
     Dosage: INTRAVENOUS
     Route: 042

REACTIONS (2)
  - LUNG INFECTION [None]
  - VENOOCCLUSIVE DISEASE [None]
